FAERS Safety Report 6316677-X (Version None)
Quarter: 2009Q3

REPORT INFORMATION
  Report Type: 
  Country: None (occurrence: None)
  Receive Date: 20090820
  Receipt Date: 20090811
  Transmission Date: 20100115
  Serious: Yes (Hospitalization)
  Sender: FDA-Public Use
  Company Number: US-MERCK-0908USA00471

PATIENT
  Age: 47 Year
  Sex: Female

DRUGS (1)
  1. IVOMEC [Suspect]
     Indication: DRUG ADMINISTRATION ERROR
     Route: 048
     Dates: start: 20090101

REACTIONS (6)
  - ACCIDENTAL EXPOSURE [None]
  - ARRHYTHMIA [None]
  - DYSPNOEA [None]
  - HEPATIC FAILURE [None]
  - POISONING [None]
  - RENAL FAILURE [None]
